FAERS Safety Report 21396451 (Version 1)
Quarter: 2022Q3

REPORT INFORMATION
  Report Type: Spontaneous
  Country: CN (occurrence: CN)
  Receive Date: 20220930
  Receipt Date: 20220930
  Transmission Date: 20221027
  Serious: Yes (Life-Threatening, Other)
  Sender: FDA-Public Use
  Company Number: CN-BRACCO-2022CN03902

PATIENT
  Age: 52 Year
  Sex: Female

DRUGS (1)
  1. IOPAMIDOL [Suspect]
     Active Substance: IOPAMIDOL
     Indication: Computerised tomogram
     Dosage: 35 ML HIGH-PRESSURE, SINGLE
     Route: 042
     Dates: start: 20220920, end: 20220920

REACTIONS (1)
  - Syncope [Recovering/Resolving]

NARRATIVE: CASE EVENT DATE: 20220920
